FAERS Safety Report 24537155 (Version 1)
Quarter: 2024Q4

REPORT INFORMATION
  Report Type: Spontaneous
  Country: US (occurrence: US)
  Receive Date: 20241022
  Receipt Date: 20241022
  Transmission Date: 20250114
  Serious: No
  Sender: BIOMARIN
  Company Number: US-BIOMARINAP-US-2024-161248

PATIENT

DRUGS (1)
  1. SAPROPTERIN DIHYDROCHLORIDE [Suspect]
     Active Substance: SAPROPTERIN DIHYDROCHLORIDE
     Indication: Metabolic disorder
     Route: 065

REACTIONS (5)
  - Fine motor skill dysfunction [Recovering/Resolving]
  - Dysstasia [Recovering/Resolving]
  - Respiration abnormal [Recovering/Resolving]
  - Insomnia [Recovering/Resolving]
  - Off label use [Unknown]
